FAERS Safety Report 9603361 (Version 1)
Quarter: 2013Q4

REPORT INFORMATION
  Report Type: Spontaneous
  Country: GB (occurrence: GB)
  Receive Date: 20131007
  Receipt Date: 20131007
  Transmission Date: 20140711
  Serious: Yes (Other)
  Sender: FDA-Public Use
  Company Number: GB-B.I. PHARMACEUTICALS,INC./RIDGEFIELD-2013-BI-30985UK

PATIENT
  Age: 68 Year
  Sex: Male
  Weight: 76 kg

DRUGS (6)
  1. DABIGATRAN [Suspect]
     Dates: start: 20130815, end: 20130912
  2. ASPIRIN [Concomitant]
     Dates: start: 20130528, end: 20130826
  3. BISOPROLOL [Concomitant]
     Dates: start: 20130528, end: 20130826
  4. DIGOXIN [Concomitant]
     Dates: start: 20130528, end: 20130826
  5. FUROSEMIDE [Concomitant]
     Dates: start: 20130528, end: 20130625
  6. FUROSEMIDE [Concomitant]
     Dates: start: 20130729, end: 20130826

REACTIONS (2)
  - Palpitations [Not Recovered/Not Resolved]
  - Heart rate increased [Unknown]
